FAERS Safety Report 5833314-9 (Version None)
Quarter: 2008Q3

REPORT INFORMATION
  Report Type: 
  Country: None (occurrence: None)
  Receive Date: 20080804
  Receipt Date: 20080804
  Transmission Date: 20090109
  Serious: No
  Sender: FDA-Public Use
  Company Number: None

PATIENT
  Age: 50 Year
  Sex: Female
  Weight: 69.4003 kg

DRUGS (6)
  1. EMEND [Suspect]
     Indication: BREAST CANCER
     Dosage: 115 MG IVPB X1 METX
     Dates: start: 20080722
  2. EMEND [Suspect]
     Indication: CHEMOTHERAPY
     Dosage: 115 MG IVPB X1 METX
     Dates: start: 20080722
  3. TAXOTERE [Concomitant]
  4. CYTOXAN [Concomitant]
  5. DECADRON [Concomitant]
  6. ALOXI [Concomitant]

REACTIONS (4)
  - EAR DISCOMFORT [None]
  - FLUSHING [None]
  - NASAL DISCOMFORT [None]
  - THROAT IRRITATION [None]
